FAERS Safety Report 4768177-6 (Version None)
Quarter: 2005Q3

REPORT INFORMATION
  Report Type: 
  Country: None (occurrence: None)
  Receive Date: 20050908
  Receipt Date: 20050804
  Transmission Date: 20060218
  Serious: Yes (Hospitalization)
  Sender: FDA-Public Use
  Company Number: A03200502381

PATIENT
  Sex: Male

DRUGS (5)
  1. ELOXATIN [Suspect]
     Indication: COLON CANCER METASTATIC
     Dosage: INTRAVENOUS NOS
     Route: 042
  2. FLUOROURACIL [Concomitant]
  3. LEUCOVORIN [Concomitant]
  4. BEVACIZUMAB [Concomitant]
  5. CETUXIMAB [Concomitant]

REACTIONS (3)
  - BACTERAEMIA [None]
  - HYPERSENSITIVITY [None]
  - RASH [None]
